FAERS Safety Report 11241823 (Version 2)
Quarter: 2015Q3

REPORT INFORMATION
  Report Type: Report from Study
  Country: US (occurrence: US)
  Receive Date: 20150706
  Receipt Date: 20150821
  Transmission Date: 20151125
  Serious: Yes (Hospitalization)
  Sender: FDA-Public Use
  Company Number: US-JNJFOC-20150621411

PATIENT
  Age: 1 Year
  Sex: Male
  Weight: 9.07 kg

DRUGS (3)
  1. REMICADE [Suspect]
     Active Substance: INFLIXIMAB
     Indication: KAWASAKI^S DISEASE
     Dosage: ONCE DOSE
     Route: 042
     Dates: start: 20150529, end: 2015
  2. BENADRYL [Concomitant]
     Active Substance: DIPHENHYDRAMINE HYDROCHLORIDE
     Indication: RASH
     Route: 048
     Dates: start: 201505
  3. REMICADE [Suspect]
     Active Substance: INFLIXIMAB
     Indication: KAWASAKI^S DISEASE
     Route: 042
     Dates: start: 20150106, end: 20150106

REACTIONS (3)
  - Kawasaki^s disease [Recovering/Resolving]
  - Drug effect decreased [Unknown]
  - Product use issue [Unknown]

NARRATIVE: CASE EVENT DATE: 2015
